FAERS Safety Report 6307248-X (Version None)
Quarter: 2009Q3

REPORT INFORMATION
  Report Type: 
  Country: None (occurrence: None)
  Receive Date: 20090813
  Receipt Date: 20090804
  Transmission Date: 20100115
  Serious: Yes (Hospitalization)
  Sender: FDA-Public Use
  Company Number: US-BAYER-200928059NA

PATIENT
  Sex: Female

DRUGS (4)
  1. BETASERON [Suspect]
     Indication: DRUG USE FOR UNKNOWN INDICATION
     Dosage: LOWEST DOSE
     Dates: start: 19950101, end: 20080101
  2. NAPROXEN [Concomitant]
     Indication: ARTHRITIS
  3. TYLENOL W/ CODEINE NO. 3 [Concomitant]
     Indication: ARTHRITIS
  4. TYSABRI [Concomitant]
     Dates: start: 20080101

REACTIONS (4)
  - CONTUSION [None]
  - EPISTAXIS [None]
  - LEUKAEMIA [None]
  - POSTMENOPAUSAL HAEMORRHAGE [None]
